FAERS Safety Report 11202633 (Version 1)
Quarter: 2015Q2

REPORT INFORMATION
  Report Type: Spontaneous
  Country: US (occurrence: None)
  Receive Date: 20150618
  Receipt Date: 20150618
  Transmission Date: 20150821
  Serious: No
  Sender: FDA-Public Use
  Company Number: None

PATIENT
  Age: 68 Year
  Sex: Male
  Weight: 108.6 kg

DRUGS (2)
  1. ARIPIPRAZOLE. [Suspect]
     Active Substance: ARIPIPRAZOLE
     Indication: DEPRESSION
     Route: 048
     Dates: start: 20130719, end: 20130805
  2. CITALOPRAM [Suspect]
     Active Substance: CITALOPRAM HYDROBROMIDE
     Route: 048
     Dates: start: 20130719, end: 20130805

REACTIONS (6)
  - Syncope [None]
  - Bradycardia [None]
  - Electrocardiogram QT prolonged [None]
  - Tachycardia [None]
  - Weight increased [None]
  - Heart rate irregular [None]

NARRATIVE: CASE EVENT DATE: 20130805
